FAERS Safety Report 5500905-4 (Version None)
Quarter: 2007Q4

REPORT INFORMATION
  Report Type: 
  Country: None (occurrence: None)
  Receive Date: 20071029
  Receipt Date: 20071019
  Transmission Date: 20080405
  Serious: Yes (Hospitalization)
  Sender: FDA-Public Use
  Company Number: US-SANOFI-SYNTHELABO-F03200700197

PATIENT
  Age: 46 Year
  Sex: Male

DRUGS (6)
  1. ZOFRAN [Concomitant]
     Dosage: UNK
     Route: 048
  2. TYLENOL (CAPLET) [Concomitant]
     Dosage: UNK
     Route: 048
     Dates: start: 20070523
  3. ATIVAN [Concomitant]
     Dosage: UNK
     Route: 048
     Dates: start: 20070516
  4. GEMCITABINE HCL [Suspect]
     Indication: GALLBLADDER CANCER
     Route: 040
  5. BEVACIZUMAB [Suspect]
     Indication: GALLBLADDER CANCER
     Route: 040
  6. OXALIPLATIN [Suspect]
     Indication: GALLBLADDER CANCER
     Route: 040

REACTIONS (5)
  - ABSCESS [None]
  - PNEUMONIA [None]
  - PULMONARY OEDEMA [None]
  - PYREXIA [None]
  - SEPTIC SHOCK [None]
